FAERS Safety Report 13084404 (Version 2)
Quarter: 2017Q1

REPORT INFORMATION
  Report Type: Report from Study
  Country: FR (occurrence: FR)
  Receive Date: 20170104
  Receipt Date: 20170119
  Transmission Date: 20170428
  Serious: Yes (Death)
  Sender: FDA-Public Use
  Company Number: FR-ACTELION-A-CH2016-146585

PATIENT
  Age: 61 Year
  Sex: Female

DRUGS (19)
  1. UPTRAVI [Suspect]
     Active Substance: SELEXIPAG
     Dosage: 800 ?G, UNK
     Route: 048
     Dates: start: 20161214, end: 20161219
  2. LASILIX [Concomitant]
     Active Substance: FUROSEMIDE
     Dosage: 250 MG, OD
  3. UPTRAVI [Suspect]
     Active Substance: SELEXIPAG
     Indication: PULMONARY ARTERIAL HYPERTENSION
     Dosage: 200 ?G, UNK
     Route: 048
     Dates: start: 20161123, end: 20161129
  4. CORDARONE [Concomitant]
     Active Substance: AMIODARONE HYDROCHLORIDE
     Dosage: 200 MG, OD
  5. TRACLEER [Concomitant]
     Active Substance: BOSENTAN
     Indication: PULMONARY ARTERIAL HYPERTENSION
     Dosage: 125 MG, BID
     Route: 048
     Dates: start: 2009
  6. ADCIRCA [Concomitant]
     Active Substance: TADALAFIL
     Dosage: 40 MG, OD
     Dates: start: 2013
  7. METFORMINE [Concomitant]
     Active Substance: METFORMIN HYDROCHLORIDE
     Dosage: 1000 G, BID
  8. TERCIAN [Concomitant]
     Active Substance: CYAMEMAZINE
     Dosage: 25 MG, OD
  9. UPTRAVI [Suspect]
     Active Substance: SELEXIPAG
     Dosage: 400 ?G, UNK
     Route: 048
     Dates: start: 20161130, end: 20161206
  10. DIFFU K [Concomitant]
     Active Substance: POTASSIUM CHLORIDE
     Dosage: 600 MG, UNK
  11. PANTOPRAZOL [Concomitant]
     Active Substance: PANTOPRAZOLE SODIUM
     Dosage: 20 MG, OD
  12. XANAX [Concomitant]
     Active Substance: ALPRAZOLAM
     Dosage: 0.5 MG, PRN
  13. PARACETAMOL [Concomitant]
     Active Substance: ACETAMINOPHEN
     Dosage: 1000 MG, PRN
  14. DIAMICRON [Concomitant]
     Active Substance: GLICLAZIDE
     Dosage: 30 MG, OD
  15. UPTRAVI [Suspect]
     Active Substance: SELEXIPAG
     Dosage: 600 ?G, UNK
     Route: 048
     Dates: start: 20161207, end: 20161213
  16. TARDYFERON [Concomitant]
     Active Substance: FERROUS SULFATE
     Dosage: UNK
  17. STILNOX [Concomitant]
     Active Substance: ZOLPIDEM TARTRATE
     Dosage: 10 MG, OD
  18. THERALENE [Concomitant]
     Active Substance: TRIMEPRAZINE
     Dosage: UNK
  19. INNOHEP [Concomitant]
     Active Substance: TINZAPARIN SODIUM
     Dosage: UNK

REACTIONS (3)
  - Diarrhoea [Recovered/Resolved]
  - Headache [Recovered/Resolved]
  - Sudden death [Fatal]

NARRATIVE: CASE EVENT DATE: 20161126
